FAERS Safety Report 6015962-9 (Version None)
Quarter: 2008Q4

REPORT INFORMATION
  Report Type: 
  Country: None (occurrence: None)
  Receive Date: 20081219
  Receipt Date: 20081219
  Transmission Date: 20090506
  Serious: Yes (Hospitalization, Other)
  Sender: FDA-Public Use
  Company Number: None

PATIENT

DRUGS (1)
  1. VENLAFAINE 37.5 MG TABLETS [Suspect]
     Dates: start: 20080401, end: 20080401

REACTIONS (1)
  - TARDIVE DYSKINESIA [None]
